APPROVED DRUG PRODUCT: DEXAMETHASONE
Active Ingredient: DEXAMETHASONE
Strength: 0.5MG/5ML
Dosage Form/Route: ELIXIR;ORAL
Application: A088997 | Product #001
Applicant: ALPHARMA US PHARMACEUTICALS DIVISION
Approved: Oct 10, 1986 | RLD: No | RS: No | Type: DISCN